FAERS Safety Report 21051328 (Version 1)
Quarter: 2022Q3

REPORT INFORMATION
  Report Type: Spontaneous
  Country: US (occurrence: US)
  Receive Date: 20220707
  Receipt Date: 20220707
  Transmission Date: 20221027
  Serious: No
  Sender: FDA-Public Use
  Company Number: US-ViiV Healthcare Limited-81866

PATIENT

DRUGS (7)
  1. RILPIVIRINE [Suspect]
     Active Substance: RILPIVIRINE
     Indication: Product used for unknown indication
     Route: 030
     Dates: start: 2022
  2. RILPIVIRINE [Suspect]
     Active Substance: RILPIVIRINE
     Route: 030
     Dates: start: 2022
  3. CABOTEGRAVIR [Suspect]
     Active Substance: CABOTEGRAVIR
     Indication: Product used for unknown indication
     Route: 065
     Dates: start: 2022
  4. CABOTEGRAVIR [Suspect]
     Active Substance: CABOTEGRAVIR
     Route: 065
     Dates: start: 2022
  5. VOCABRIA [CABOTEGRAVIR SODIUM] [Concomitant]
     Indication: Product used for unknown indication
     Dosage: UNK
     Route: 065
     Dates: start: 2022
  6. EDURANT [Concomitant]
     Active Substance: RILPIVIRINE HYDROCHLORIDE
     Indication: Product used for unknown indication
     Dosage: UNK
     Dates: start: 2022
  7. EDURANT [Concomitant]
     Active Substance: RILPIVIRINE HYDROCHLORIDE
     Indication: Product used for unknown indication
     Dosage: UNK
     Route: 065
     Dates: start: 2022

REACTIONS (2)
  - Virologic failure [Unknown]
  - Viral load increased [Unknown]

NARRATIVE: CASE EVENT DATE: 20220101
